FAERS Safety Report 4357635-4 (Version None)
Quarter: 2004Q2

REPORT INFORMATION
  Report Type: 
  Country: None (occurrence: None)
  Receive Date: 20040510
  Receipt Date: 20040426
  Transmission Date: 20050107
  Serious: Yes (Other)
  Sender: FDA-Public Use
  Company Number: HQWYE688110MAR04

PATIENT
  Age: 46 Year
  Sex: Female
  Weight: 52.21 kg

DRUGS (3)
  1. EFFEXOR XR [Suspect]
     Indication: DEPRESSION
     Dosage: 75 MG 1X PER 1 DAY, ORAL
     Route: 048
     Dates: start: 20031201, end: 20040101
  2. LITHIUM (LITHIUM) [Concomitant]
  3. SYNTHROID [Concomitant]

REACTIONS (3)
  - ANTINUCLEAR ANTIBODY POSITIVE [None]
  - BONE MARROW DEPRESSION [None]
  - PANCYTOPENIA [None]
